FAERS Safety Report 5490732-9 (Version None)
Quarter: 2007Q4

REPORT INFORMATION
  Report Type: 
  Country: None (occurrence: None)
  Receive Date: 20071019
  Receipt Date: 20071015
  Transmission Date: 20080405
  Serious: Yes (Hospitalization)
  Sender: FDA-Public Use
  Company Number: B0489422A

PATIENT
  Age: 60 Year
  Sex: Female
  Weight: 48 kg

DRUGS (7)
  1. BUPROPION HCL [Suspect]
     Indication: MAJOR DEPRESSION
     Route: 048
     Dates: start: 20070731, end: 20070928
  2. PAROXETINE HYDROCHLORIDE HYDRATE [Suspect]
     Indication: MAJOR DEPRESSION
     Dates: start: 20070612
  3. AMLODIPINE [Concomitant]
     Indication: HYPERTENSION
     Dosage: 2.5MG PER DAY
     Route: 048
     Dates: start: 20070320
  4. URSO 250 [Concomitant]
     Indication: HEPATIC STEATOSIS
     Dosage: 300MG PER DAY
     Route: 048
     Dates: start: 20070320
  5. RHYTHMY [Concomitant]
     Indication: INSOMNIA
     Dosage: 2MG PER DAY
     Route: 048
     Dates: start: 20070814
  6. ZOLPIDEM [Concomitant]
     Indication: INSOMNIA
     Dosage: 10MG PER DAY
     Route: 048
     Dates: start: 20070604, end: 20070927
  7. AMOBAN [Concomitant]
     Indication: INSOMNIA
     Dosage: 10MG PER DAY
     Route: 048
     Dates: start: 20070925, end: 20070927

REACTIONS (4)
  - ALTERED STATE OF CONSCIOUSNESS [None]
  - CONTUSION [None]
  - CONVULSION [None]
  - LACERATION [None]
